FAERS Safety Report 23457195 (Version 2)
Quarter: 2024Q1

REPORT INFORMATION
  Report Type: Spontaneous
  Country: CA (occurrence: CA)
  Receive Date: 20240130
  Receipt Date: 20240325
  Transmission Date: 20240409
  Serious: Yes (Other)
  Sender: FDA-Public Use
  Company Number: CA-PFIZER INC-202400026924

PATIENT
  Age: 25 Year
  Sex: Female

DRUGS (13)
  1. RUXIENCE [Suspect]
     Active Substance: RITUXIMAB-PVVR
     Indication: Stiff person syndrome
     Dosage: 1000 MG,DAY 1 AND DAY 15.  EVERY 6 MONTHS X 1 YEAR
     Route: 042
     Dates: start: 20230627, end: 20230711
  2. BACLOFEN [Concomitant]
     Active Substance: BACLOFEN
     Dosage: 50 MG
  3. CITALOPRAM [Concomitant]
     Active Substance: CITALOPRAM\CITALOPRAM HYDROBROMIDE
     Dosage: 20 MG
  4. DIAZEPAM [Concomitant]
     Active Substance: DIAZEPAM
     Dosage: 5 MG
  5. DILTIAZEM [Concomitant]
     Active Substance: DILTIAZEM
     Dosage: 45 MG
  6. IVIGLOB EX [Concomitant]
     Active Substance: HUMAN IMMUNOGLOBULIN G
     Dosage: 8 MG
  7. MIDODRINE [Concomitant]
     Active Substance: MIDODRINE
     Dosage: 5 MG
  8. PREGABALIN [Concomitant]
     Active Substance: PREGABALIN
     Dosage: 75 MG
  9. PREDNISONE [Concomitant]
     Active Substance: PREDNISONE
     Dosage: 5 MG
  10. PANTOPRAZOLE [Concomitant]
     Active Substance: PANTOPRAZOLE
     Dosage: 40 MG
  11. RITUXIMAB [Concomitant]
     Active Substance: RITUXIMAB
     Dosage: UNK
  12. SEPTRA [Concomitant]
     Active Substance: SULFAMETHOXAZOLE\TRIMETHOPRIM
     Dosage: 1 DF,800/160MG
  13. TIZANIDINE [Concomitant]
     Active Substance: TIZANIDINE
     Dosage: 2 MG

REACTIONS (2)
  - Cataract [Unknown]
  - Off label use [Unknown]

NARRATIVE: CASE EVENT DATE: 20230627
